FAERS Safety Report 25837105 (Version 3)
Quarter: 2025Q4

REPORT INFORMATION
  Report Type: Spontaneous
  Country: EU (occurrence: EU)
  Receive Date: 20250923
  Receipt Date: 20251103
  Transmission Date: 20260118
  Serious: Yes (Death, Hospitalization, Other)
  Sender: SANOFI AVENTIS
  Company Number: EU-SA-2025SA283344

PATIENT
  Age: 58 Year
  Sex: Female
  Weight: 80 kg

DRUGS (29)
  1. CAPLACIZUMAB [Suspect]
     Active Substance: CAPLACIZUMAB
     Indication: Thrombotic thrombocytopenic purpura
     Dosage: 10 MG, QD
     Route: 058
     Dates: start: 2025
  2. CAPLACIZUMAB [Suspect]
     Active Substance: CAPLACIZUMAB
     Indication: Thrombotic thrombocytopenic purpura
     Dosage: 10 MG, QD
     Route: 058
     Dates: start: 2025
  3. CAPLACIZUMAB [Suspect]
     Active Substance: CAPLACIZUMAB
     Indication: Thrombotic thrombocytopenic purpura
     Dosage: 10 MG, QD
     Route: 058
     Dates: start: 2025
  4. CAPLACIZUMAB [Suspect]
     Active Substance: CAPLACIZUMAB
     Indication: Thrombotic thrombocytopenic purpura
     Dosage: 10 MG, QD
     Route: 058
     Dates: start: 2025
  5. VALPROIC ACID [Concomitant]
     Active Substance: VALPROIC ACID
     Dosage: UNK
     Route: 042
     Dates: start: 20250121, end: 20250203
  6. ATOVAQUONE [Concomitant]
     Active Substance: ATOVAQUONE
     Dosage: 1500 MG, QD
     Dates: start: 20250121, end: 20250208
  7. AZITHROMYCIN [Concomitant]
     Active Substance: AZITHROMYCIN
     Dosage: 2000 MG
     Dates: start: 20250119, end: 20250122
  8. BISACODYL [Concomitant]
     Active Substance: BISACODYL
  9. CEFTRIAXONE [Concomitant]
     Active Substance: CEFTRIAXONE
     Dosage: 2000 MG, QD
     Dates: start: 20250124
  10. KETAMINE [Concomitant]
     Active Substance: KETAMINE
  11. CLOBAZAM [Concomitant]
     Active Substance: CLOBAZAM
     Dosage: UNK
     Route: 048
     Dates: start: 20250124, end: 20250208
  12. CHOLECALCIFEROL [Concomitant]
     Active Substance: CHOLECALCIFEROL
     Dosage: 3 DF, QD
     Dates: start: 20250124, end: 20250208
  13. DEXMEDETOMIDINE [Concomitant]
     Active Substance: DEXMEDETOMIDINE
  14. ENOXAPARIN SODIUM [Concomitant]
     Active Substance: ENOXAPARIN SODIUM
     Dosage: 40 MG
     Route: 058
     Dates: start: 20250123, end: 20250208
  15. LACOSAMIDE [Concomitant]
     Active Substance: LACOSAMIDE
     Dosage: 400 MG, QD
     Route: 048
     Dates: start: 20250122, end: 20250208
  16. LEVETIRACETAM [Concomitant]
     Active Substance: LEVETIRACETAM
     Dosage: 4000 MG, QD
     Route: 042
     Dates: start: 20250121, end: 20250208
  17. LEVOTHYROXINE SODIUM [Concomitant]
     Active Substance: LEVOTHYROXINE SODIUM
     Dosage: 0.05 MG
     Route: 048
     Dates: start: 20250120, end: 20250208
  18. METHYLPREDNISOLONE [Concomitant]
     Active Substance: METHYLPREDNISOLONE
     Dosage: 1000 MG
     Route: 042
     Dates: start: 20250120, end: 20250223
  19. METHYLPREDNISOLONE [Concomitant]
     Active Substance: METHYLPREDNISOLONE
     Dosage: 125 MG
     Route: 042
     Dates: start: 20250125, end: 20250203
  20. PANTOPRAZOLE [Concomitant]
     Active Substance: PANTOPRAZOLE
     Dosage: 40 MG
     Route: 042
     Dates: start: 20250121, end: 20250208
  21. ACETAMINOPHEN [Concomitant]
     Active Substance: ACETAMINOPHEN
     Dosage: 4 G, QD
     Route: 042
     Dates: start: 20250120, end: 20250208
  22. PERAMPANEL [Concomitant]
     Active Substance: PERAMPANEL
     Dosage: 4 MG
     Route: 048
     Dates: start: 20250201, end: 20250208
  23. PERAMPANEL [Concomitant]
     Active Substance: PERAMPANEL
     Dosage: 6 MG
     Route: 048
     Dates: start: 20250201, end: 20250208
  24. PERAMPANEL [Concomitant]
     Active Substance: PERAMPANEL
     Dosage: 8 MG
     Route: 048
     Dates: start: 20250201, end: 20250208
  25. PREDNISOLONE [Concomitant]
     Active Substance: PREDNISOLONE
     Dosage: UNK
     Route: 048
     Dates: start: 20250122, end: 20250208
  26. PROPOFOL [Concomitant]
     Active Substance: PROPOFOL
  27. RITUXIMAB [Concomitant]
     Active Substance: RITUXIMAB
     Dosage: 700 MG
     Route: 042
     Dates: start: 20250122
  28. RITUXIMAB [Concomitant]
     Active Substance: RITUXIMAB
     Dosage: 700 MG
     Route: 042
     Dates: start: 20250129, end: 20250206
  29. THIAMINE [Concomitant]
     Active Substance: THIAMINE
     Dosage: 100 MG
     Route: 042
     Dates: start: 20250128, end: 20250208

REACTIONS (3)
  - Ovarian cancer [Fatal]
  - Myoclonic epilepsy [Fatal]
  - Thrombocytopenia [Recovered/Resolved]

NARRATIVE: CASE EVENT DATE: 20250116
